FAERS Safety Report 4614891-2 (Version None)
Quarter: 2005Q1

REPORT INFORMATION
  Report Type: 
  Country: None (occurrence: None)
  Receive Date: 20050318
  Receipt Date: 20050318
  Transmission Date: 20050727
  Serious: Yes (Other)
  Sender: FDA-Public Use
  Company Number: None

PATIENT
  Age: 47 Year
  Sex: Female
  Weight: 97.977 kg

DRUGS (10)
  1. VENTOLIN [Suspect]
     Indication: ASTHMA
     Dosage: 2 PUFFS QID
  2. HYDROCHLOROTHIAZIDE [Concomitant]
  3. LOTENSIN [Concomitant]
  4. THEO-DUR [Concomitant]
  5. ALLOPURINOL [Concomitant]
  6. LIPITOR [Concomitant]
  7. TEVETEN [Concomitant]
  8. GLUCOTROL [Concomitant]
  9. FLOVENT [Concomitant]
  10. CLARADOL [Concomitant]

REACTIONS (2)
  - DRUG EFFECT DECREASED [None]
  - PHARMACEUTICAL PRODUCT COMPLAINT [None]
